FAERS Safety Report 6291231-7 (Version None)
Quarter: 2009Q3

REPORT INFORMATION
  Report Type: 
  Country: None (occurrence: None)
  Receive Date: 20090730
  Receipt Date: 20090723
  Transmission Date: 20100115
  Serious: Yes (Life-Threatening, Hospitalization)
  Sender: FDA-Public Use
  Company Number: TH-ABBOTT-09P-155-0586897-00

PATIENT
  Sex: Male
  Weight: 74 kg

DRUGS (4)
  1. SUPRALIP NT [Suspect]
     Indication: DYSLIPIDAEMIA
     Route: 048
     Dates: end: 20090612
  2. MINIDIAB [Concomitant]
     Indication: TYPE 2 DIABETES MELLITUS
     Route: 048
  3. GLUCOPHAGE [Concomitant]
     Indication: TYPE 2 DIABETES MELLITUS
     Route: 048
  4. SAMARIN [Concomitant]
     Indication: HEPATIC STEATOSIS
     Route: 048

REACTIONS (2)
  - DEEP VEIN THROMBOSIS [None]
  - PULMONARY EMBOLISM [None]
